FAERS Safety Report 6088786-4 (Version None)
Quarter: 2009Q1

REPORT INFORMATION
  Report Type: 
  Country: None (occurrence: None)
  Receive Date: 20090218
  Receipt Date: 20090218
  Transmission Date: 20090719
  Serious: Yes (Other)
  Sender: FDA-Public Use
  Company Number: None

PATIENT
  Age: 60 Year
  Sex: Female
  Weight: 79.3795 kg

DRUGS (1)
  1. DIFLUCAN [Suspect]
     Indication: ORAL CANDIDIASIS
     Dosage: 200 MG. INITIAL /100MG. 9 DAYS  10 DAYS PO
     Route: 048
     Dates: start: 20080126, end: 20080204

REACTIONS (3)
  - ANXIETY [None]
  - INSOMNIA [None]
  - PANIC DISORDER [None]
